FAERS Safety Report 8191762-9 (Version None)
Quarter: 2012Q1

REPORT INFORMATION
  Report Type: 
  Country: None (occurrence: None)
  Receive Date: 20120307
  Receipt Date: 20120305
  Transmission Date: 20120608
  Serious: Yes (Life-Threatening, Hospitalization)
  Sender: FDA-Public Use
  Company Number: AU-B.I. PHARMACEUTICALS,INC./RIDGEFIELD-2012-AU-00287AU

PATIENT
  Sex: Female
  Weight: 52 kg

DRUGS (3)
  1. MICARDIS HCT [Suspect]
     Indication: BLOOD PRESSURE
     Dosage: NR/12.5 MG
  2. MICARDIS [Suspect]
     Indication: BLOOD PRESSURE
  3. MICARDIS HCT [Suspect]
     Dosage: 80/25MG

REACTIONS (4)
  - HYPONATRAEMIA [None]
  - ATRIAL FIBRILLATION [None]
  - BLOOD PRESSURE ABNORMAL [None]
  - FATIGUE [None]
